FAERS Safety Report 15360619 (Version 1)
Quarter: 2018Q3

REPORT INFORMATION
  Report Type: Spontaneous
  Country: US (occurrence: US)
  Receive Date: 20180907
  Receipt Date: 20180907
  Transmission Date: 20181010
  Serious: Yes (Other)
  Sender: FDA-Public Use
  Company Number: PHEH2018US037060

PATIENT
  Age: 45 Year
  Sex: Male

DRUGS (5)
  1. VIMPAT [Concomitant]
     Active Substance: LACOSAMIDE
     Dosage: 300 UNK, UNK (AT NIGHT)
     Route: 065
  2. EPITOL [Concomitant]
     Active Substance: CARBAMAZEPINE
     Indication: PRODUCT USED FOR UNKNOWN INDICATION
     Dosage: 400 MG,QD (400 MG AT NIGHT)
     Route: 065
  3. EPITOL [Concomitant]
     Active Substance: CARBAMAZEPINE
     Dosage: 400 UNK, UNK (AT NIGHT)
     Route: 065
     Dates: start: 20150101
  4. VIMPAT [Concomitant]
     Active Substance: LACOSAMIDE
     Indication: PRODUCT USED FOR UNKNOWN INDICATION
     Dosage: 200 MG, QD (AT NIGHT)
     Route: 065
  5. TEGRETOL [Suspect]
     Active Substance: CARBAMAZEPINE
     Indication: FOCAL DYSCOGNITIVE SEIZURES
     Dosage: 400 MG, BID
     Route: 065
     Dates: start: 20170105

REACTIONS (3)
  - Dizziness [Unknown]
  - Seizure [Unknown]
  - Somnolence [Unknown]

NARRATIVE: CASE EVENT DATE: 20170706
